FAERS Safety Report 14448791 (Version 3)
Quarter: 2019Q2

REPORT INFORMATION
  Report Type: Spontaneous
  Country: US (occurrence: US)
  Receive Date: 20180126
  Receipt Date: 20190401
  Transmission Date: 20190711
  Serious: Yes (Hospitalization)
  Sender: FDA-Public Use
  Company Number: US-VANDA PHARMACEUTICALS, INC-2018TASUS002038

PATIENT
  Age: 27 Year
  Sex: Female

DRUGS (1)
  1. HETLIOZ [Suspect]
     Active Substance: TASIMELTEON
     Indication: BLINDNESS
     Dosage: 20 MG, QHS
     Route: 048
     Dates: start: 20171219

REACTIONS (8)
  - Thrombosis [Unknown]
  - Abnormal dreams [Unknown]
  - Product dose omission [Unknown]
  - Gout [Unknown]
  - Myalgia [Unknown]
  - Malaise [Unknown]
  - Nightmare [Unknown]
  - Sleep talking [Unknown]
